FAERS Safety Report 7354406-1 (Version None)
Quarter: 2011Q1

REPORT INFORMATION
  Report Type: 
  Country: None (occurrence: None)
  Receive Date: 20110316
  Receipt Date: 20110302
  Transmission Date: 20110831
  Serious: Yes (Hospitalization, Other)
  Sender: FDA-Public Use
  Company Number: PHHY2011US15397

PATIENT
  Sex: Female
  Weight: 63 kg

DRUGS (16)
  1. CALCIUM WITH VITAMIN D [Concomitant]
     Dosage: 600 MG, BID
  2. MELOXICAM [Concomitant]
     Dosage: 7.5 MG, QD
     Route: 048
  3. PAROXETINE [Concomitant]
     Dosage: 20 MG, QD
     Route: 048
  4. HYDROCHLOROTHIAZIDE [Concomitant]
     Dosage: 100 MG, QD
  5. ALENDRONATE SODIUM [Concomitant]
     Dosage: 10 MG, QD
     Route: 048
  6. THIOTHIXENE [Concomitant]
     Dosage: 05 MG, QD
     Route: 048
  7. CARDIZEM [Concomitant]
     Dosage: 240 MG, QD
     Route: 048
  8. ANTIDEPRESSANTS [Concomitant]
  9. EXJADE [Suspect]
     Indication: HAEMOCHROMATOSIS
  10. ANTIHYPERTENSIVES [Concomitant]
  11. EXJADE [Suspect]
     Indication: PHOSPHORUS METABOLISM DISORDER
     Dosage: 1250 MG, QD
     Route: 048
     Dates: start: 20101222, end: 20110203
  12. ASPIRIN [Concomitant]
     Dosage: 81 MG, UNK
     Route: 048
  13. NAMENDA [Concomitant]
     Dosage: 10 MG, QD
     Route: 048
  14. RAZADYNE [Concomitant]
     Dosage: 12 MG, QD
     Route: 048
  15. COZAAR [Concomitant]
     Dosage: 100 MG, QD
     Route: 048
  16. ADVIL LIQUI-GELS [Concomitant]
     Dosage: 200 MG, PRN
     Route: 048

REACTIONS (9)
  - SYNCOPE [None]
  - HYPOTENSION [None]
  - DIZZINESS [None]
  - QUALITY OF LIFE DECREASED [None]
  - DYSPNOEA [None]
  - TRICUSPID VALVE INCOMPETENCE [None]
  - AORTIC STENOSIS [None]
  - VERTIGO [None]
  - COGNITIVE DISORDER [None]
